FAERS Safety Report 17821154 (Version 1)
Quarter: 2020Q2

REPORT INFORMATION
  Report Type: Spontaneous
  Country: JP (occurrence: JP)
  Receive Date: 20200525
  Receipt Date: 20200525
  Transmission Date: 20200714
  Serious: Yes (Other)
  Sender: FDA-Public Use
  Company Number: JP-STRIDES ARCOLAB LIMITED-2020SP005999

PATIENT
  Age: 56 Year
  Sex: Female

DRUGS (6)
  1. TACROLIMUS. [Suspect]
     Active Substance: TACROLIMUS
     Indication: CROHN^S DISEASE
     Dosage: 3 MILLIGRAM PER DAY
     Route: 065
  2. TOCILIZUMAB. [Suspect]
     Active Substance: TOCILIZUMAB
     Indication: RHEUMATOID ARTHRITIS
  3. PREDNISOLONE. [Suspect]
     Active Substance: PREDNISOLONE
     Indication: RHEUMATOID ARTHRITIS
     Dosage: 30 MILLIGRAM PER DAY, DOSE INCREASED
     Route: 065
  4. TACROLIMUS. [Suspect]
     Active Substance: TACROLIMUS
     Indication: RHEUMATOID ARTHRITIS
  5. PREDNISOLONE. [Suspect]
     Active Substance: PREDNISOLONE
     Indication: CROHN^S DISEASE
     Dosage: 12 MILLIGRAM PER DAY
     Route: 065
  6. TOCILIZUMAB. [Suspect]
     Active Substance: TOCILIZUMAB
     Indication: CROHN^S DISEASE
     Dosage: 8 MILLIGRAM/KILOGRAM MONTHLY
     Route: 065

REACTIONS (6)
  - Pustular psoriasis [Recovered/Resolved]
  - Withdrawal syndrome [Unknown]
  - Rash [Recovered/Resolved]
  - Off label use [Unknown]
  - Dermatitis psoriasiform [Recovered/Resolved]
  - Erythema [Recovered/Resolved]
